FAERS Safety Report 5094747-4 (Version None)
Quarter: 2006Q3

REPORT INFORMATION
  Report Type: 
  Country: None (occurrence: None)
  Receive Date: 20060731
  Receipt Date: 20060719
  Transmission Date: 20061208
  Serious: No
  Sender: FDA-Public Use
  Company Number: 2006PV012642

PATIENT
  Age: 60 Year
  Sex: Male
  Weight: 90.7194 kg

DRUGS (4)
  1. BYETTA [Suspect]
     Indication: DIABETES MELLITUS NON-INSULIN-DEPENDENT
     Dosage: 5 MCG;BID;SC
     Route: 058
     Dates: start: 20060419
  2. GLIPIZIDE [Concomitant]
  3. ACTOS [Concomitant]
  4. METFORMIN HCL [Concomitant]

REACTIONS (6)
  - ARTHRALGIA [None]
  - BLOOD GLUCOSE FLUCTUATION [None]
  - DRUG EFFECT DECREASED [None]
  - GAIT DISTURBANCE [None]
  - MYALGIA [None]
  - NAUSEA [None]
